FAERS Safety Report 4665665-8 (Version None)
Quarter: 2005Q2

REPORT INFORMATION
  Report Type: 
  Country: None (occurrence: None)
  Receive Date: 20050519
  Receipt Date: 20050509
  Transmission Date: 20051028
  Serious: Yes (Death, Hospitalization)
  Sender: FDA-Public Use
  Company Number: DE-JNJFOC-20050502494

PATIENT
  Sex: Male
  Weight: 85 kg

DRUGS (1)
  1. REOPRO [Suspect]
     Indication: ACUTE CORONARY SYNDROME
     Route: 042

REACTIONS (4)
  - CARDIAC DISORDER [None]
  - HAEMORRHAGE [None]
  - MULTI-ORGAN FAILURE [None]
  - THROMBOCYTOPENIA [None]
